FAERS Safety Report 4358750-1 (Version None)
Quarter: 2004Q2

REPORT INFORMATION
  Report Type: 
  Country: None (occurrence: None)
  Receive Date: 20040511
  Receipt Date: 20040430
  Transmission Date: 20050107
  Serious: Yes (Other)
  Sender: FDA-Public Use
  Company Number: 2004029609

PATIENT
  Age: 46 Year
  Sex: Female
  Weight: 124.7392 kg

DRUGS (11)
  1. DILANTIN [Suspect]
     Indication: CONVULSION
     Dosage: 200 MG (DAILY), ORAL
     Route: 048
  2. ALL OTHER NON-THERAPEUTIC PRODUCTS (ALL OTHER NON-THERAPEUTIC PRODUCTS [Suspect]
     Indication: ILL-DEFINED DISORDER
  3. LORAZEPAM [Concomitant]
  4. CAPECITABINE [Concomitant]
  5. ALBUTEROL SULFATE [Concomitant]
  6. WARFARIN SODIUM [Concomitant]
  7. OXYCOCET (OXYCODONE HYDROCHLORIDE, PARACETAMOL) [Concomitant]
  8. FUROSEMIDE [Concomitant]
  9. DEXAMETHASONE [Concomitant]
  10. LANSOPRAZOLE [Concomitant]
  11. TAMOXIFEN CITRATE [Concomitant]

REACTIONS (5)
  - DIZZINESS [None]
  - DRUG LEVEL INCREASED [None]
  - LOSS OF CONSCIOUSNESS [None]
  - MALIGNANT NEOPLASM PROGRESSION [None]
  - VOMITING [None]
